FAERS Safety Report 7482701-4 (Version None)
Quarter: 2011Q1

REPORT INFORMATION
  Report Type: 
  Country: None (occurrence: None)
  Receive Date: 20110308
  Receipt Date: 20101210
  Transmission Date: 20110831
  Serious: Yes (Other)
  Sender: FDA-Public Use
  Company Number: THYM-1002180

PATIENT
  Age: 13 Year
  Sex: Male

DRUGS (8)
  1. THYMOGLOBULIN [Suspect]
     Indication: PROPHYLAXIS AGAINST TRANSPLANT REJECTION
     Dosage: 75 MG, QD, INTRAVENOUS
     Route: 042
     Dates: start: 20101208
  2. MYCOPHENOLATE MOFETIL [Concomitant]
  3. NYSTATIN [Concomitant]
  4. HYDROMORPHONE (HYDROMORPHONE) [Concomitant]
  5. BACTRIM [Concomitant]
  6. GANCICLOVIR [Concomitant]
  7. CLINDAMYCIN [Concomitant]
  8. PANTOPRAZOLE [Concomitant]

REACTIONS (3)
  - INFUSION SITE REACTION [None]
  - HYPOTENSION [None]
  - INFUSION SITE EXTRAVASATION [None]
